FAERS Safety Report 24173741 (Version 1)
Quarter: 2024Q3

REPORT INFORMATION
  Report Type: Spontaneous
  Country: GB (occurrence: GB)
  Receive Date: 20240805
  Receipt Date: 20240805
  Transmission Date: 20241017
  Serious: Yes (Congenital Anomaly, Other)
  Sender: DEXCEL
  Company Number: None

PATIENT
  Sex: Female

DRUGS (3)
  1. VENLAFAXINE [Interacting]
     Active Substance: VENLAFAXINE HYDROCHLORIDE
  2. ARIPIPRAZOLE [Interacting]
     Active Substance: ARIPIPRAZOLE
  3. METFORMIN [Interacting]
     Active Substance: METFORMIN HYDROCHLORIDE

REACTIONS (4)
  - Autism spectrum disorder [Not Recovered/Not Resolved]
  - Premature baby [Recovered/Resolved]
  - Foetal exposure during pregnancy [Not Recovered/Not Resolved]
  - Drug interaction [Not Recovered/Not Resolved]
